FAERS Safety Report 7362223-1 (Version None)
Quarter: 2011Q1

REPORT INFORMATION
  Report Type: 
  Country: None (occurrence: None)
  Receive Date: 20110115
  Receipt Date: 20110115
  Transmission Date: 20110831
  Serious: No
  Sender: FDA-Public Use
  Company Number: None

PATIENT
  Sex: Male
  Weight: 73.4827 kg

DRUGS (1)
  1. NORVASC [Suspect]
     Indication: HYPERTENSION
     Dosage: 5 MG ONCE A DAY BY MOUTH
     Route: 048
     Dates: start: 20101001

REACTIONS (4)
  - OEDEMA PERIPHERAL [None]
  - JOINT SWELLING [None]
  - MUSCLE SPASMS [None]
  - DRUG EFFECT DECREASED [None]
